FAERS Safety Report 20075470 (Version 1)
Quarter: 2021Q4

REPORT INFORMATION
  Report Type: Spontaneous
  Country: US (occurrence: None)
  Receive Date: 20211116
  Receipt Date: 20211116
  Transmission Date: 20220303
  Serious: No
  Sender: FDA-Public Use
  Company Number: None

PATIENT
  Age: 88 Year
  Sex: Male
  Weight: 87.75 kg

DRUGS (1)
  1. EYLEA [Suspect]
     Active Substance: AFLIBERCEPT
     Indication: Neovascular age-related macular degeneration
     Dosage: OTHER FREQUENCY : EVERY 2-3 MONTHS;?OTHER ROUTE : INJECTED INTO THE EYE;?
     Route: 050

REACTIONS (3)
  - Visual impairment [None]
  - Therapeutic product effect decreased [None]
  - Blindness transient [None]

NARRATIVE: CASE EVENT DATE: 20210915
